FAERS Safety Report 16858836 (Version 1)
Quarter: 2019Q3

REPORT INFORMATION
  Report Type: Report from Study
  Country: US (occurrence: US)
  Receive Date: 20190926
  Receipt Date: 20190926
  Transmission Date: 20191005
  Serious: Yes (Hospitalization)
  Sender: FDA-Public Use
  Company Number: US-ACTELION-A-NJ2019-196110

PATIENT
  Age: 69 Year
  Sex: Female
  Weight: 61.68 kg

DRUGS (1)
  1. OPSUMIT [Suspect]
     Active Substance: MACITENTAN
     Indication: PULMONARY ARTERIAL HYPERTENSION
     Dosage: 10 MG, QD
     Route: 048

REACTIONS (3)
  - Muscle spasms [Recovering/Resolving]
  - Cerebrovascular accident [Recovering/Resolving]
  - Limb immobilisation [Recovering/Resolving]

NARRATIVE: CASE EVENT DATE: 20190823
